FAERS Safety Report 5488250-7 (Version None)
Quarter: 2007Q4

REPORT INFORMATION
  Report Type: 
  Country: None (occurrence: None)
  Receive Date: 20071005
  Receipt Date: 20070719
  Transmission Date: 20080405
  Serious: No
  Sender: FDA-Public Use
  Company Number: PHEH2007US10147

PATIENT
  Sex: Female

DRUGS (1)
  1. TEKTURNA [Suspect]
     Dosage: FULL TABLET; 1/2 TABLET, 1/4 TABLET

REACTIONS (4)
  - EYE DISORDER [None]
  - EYE PAIN [None]
  - HEADACHE [None]
  - SOMNOLENCE [None]
